FAERS Safety Report 9269889 (Version 2)
Quarter: 2013Q2

REPORT INFORMATION
  Report Type: Spontaneous
  Country: DE (occurrence: DE)
  Receive Date: 20130503
  Receipt Date: 20130516
  Transmission Date: 20140414
  Serious: Yes (Other)
  Sender: FDA-Public Use
  Company Number: DE-PFIZER INC-2013134738

PATIENT
  Age: 72 Year
  Sex: Male
  Weight: 85 kg

DRUGS (7)
  1. PANTOZOL [Suspect]
     Indication: GASTROOESOPHAGEAL REFLUX DISEASE
     Dosage: 20 MG, 1X/DAY
  2. PANTOZOL [Suspect]
     Dosage: 40 MG, 1X/DAY
  3. SIMVABETA [Concomitant]
     Dosage: 20
  4. CLOPIDOGREL [Concomitant]
     Dosage: 75
  5. OLMETEC [Concomitant]
     Dosage: 10
  6. L-THYROXIN [Concomitant]
     Dosage: 150
  7. AMLO [Concomitant]
     Dosage: 5 MG

REACTIONS (3)
  - Hypertensive crisis [Unknown]
  - Blood pressure increased [Recovered/Resolved]
  - Blood chromogranin A increased [Unknown]
